FAERS Safety Report 10418696 (Version 1)
Quarter: 2014Q2

REPORT INFORMATION
  Report Type: Spontaneous
  Country: US (occurrence: None)
  Receive Date: 20140616
  Receipt Date: 20140616
  Transmission Date: 20141212
  Serious: Yes (Hospitalization)
  Sender: FDA-Public Use
  Company Number: 2014-000888

PATIENT
  Age: 75 Year
  Sex: Female

DRUGS (7)
  1. ACTONEL (RISEDRONATE SODIUM) TABLET, 150MG [Suspect]
     Indication: OSTEOPOROSIS
     Route: 048
     Dates: start: 2011
  2. LOPRESSOR (METOPROLOL TARTRATE) [Concomitant]
  3. THYROID PREPARATIONS [Concomitant]
  4. LASIX (FUROSEMIDE) [Concomitant]
  5. ATORVASTATIN (ATORVASTATIN) [Concomitant]
  6. VITAMIN D3 (COLECALCIFEROL) [Concomitant]
  7. CALCIUM +D3 (CALCIUM, COLECALCIFEROL) [Concomitant]

REACTIONS (2)
  - Hip fracture [None]
  - Fall [None]
